FAERS Safety Report 9727043 (Version 1)
Quarter: 2013Q4

REPORT INFORMATION
  Report Type: Spontaneous
  Country: US (occurrence: US)
  Receive Date: 20131203
  Receipt Date: 20131203
  Transmission Date: 20140711
  Serious: Yes (Other)
  Sender: FDA-Public Use
  Company Number: US-PFIZER INC-2013343358

PATIENT
  Age: 61 Year
  Sex: Female
  Weight: 98 kg

DRUGS (16)
  1. ZOLOFT [Suspect]
     Indication: DEPRESSION
     Dosage: 50 MG, DAILY
     Route: 048
     Dates: end: 201311
  2. BELVIQ [Interacting]
     Indication: WEIGHT DECREASED
     Dosage: 10 MG, 2X/DAY
     Route: 048
     Dates: start: 20131031, end: 20131113
  3. BELVIQ [Interacting]
     Dosage: 10 MG, DAILY
     Route: 048
     Dates: start: 20131114
  4. LEVOTHYROXINE [Concomitant]
     Dosage: 75 MG, UNK
  5. FUROSEMIDE [Concomitant]
     Dosage: 40 MG, UNK
  6. POTASSIUM [Concomitant]
     Dosage: UNK
  7. NEXIUM [Concomitant]
     Dosage: 20 MG, UNK
  8. METHYLPHENID [Concomitant]
     Dosage: 10 MG, UNK
  9. SENNA [Concomitant]
     Dosage: 10 MG, 2X/DAY
  10. BABY ASPIRIN [Concomitant]
     Dosage: UNK
  11. ESTRADIOL [Concomitant]
     Dosage: UNK
  12. FISH OIL [Concomitant]
     Dosage: UNK
  13. IMITREX [Concomitant]
     Indication: HEADACHE
     Dosage: UNK
  14. SIMVASTATIN [Concomitant]
     Dosage: UNK
  15. VITAMIN D [Concomitant]
     Dosage: UNK
  16. SEROQUEL [Concomitant]
     Dosage: UNK, 1X/DAY

REACTIONS (2)
  - Drug interaction [Recovered/Resolved]
  - Serotonin syndrome [Recovered/Resolved]
